FAERS Safety Report 4278251-9 (Version None)
Quarter: 2004Q1

REPORT INFORMATION
  Report Type: 
  Country: None (occurrence: None)
  Receive Date: 20040123
  Receipt Date: 20031204
  Transmission Date: 20041129
  Serious: Yes (Hospitalization, Other)
  Sender: FDA-Public Use
  Company Number: FR-BRISTOL-MYERS SQUIBB COMPANY-12454245

PATIENT
  Age: 47 Year
  Sex: Female

DRUGS (7)
  1. ENDOXAN [Suspect]
     Indication: CENTRAL NERVOUS SYSTEM LYMPHOMA
     Dosage: 2ND CYCLE ADMINISTERED ON 02-OCT-2003.
     Route: 042
     Dates: start: 20030815, end: 20030821
  2. UROMITEXAN [Suspect]
     Indication: CENTRAL NERVOUS SYSTEM LYMPHOMA
     Dosage: 2ND CYCLE ADMINISTERED ON 02-OCT-2003.
     Dates: start: 20030821, end: 20030821
  3. METHOTREXATE [Suspect]
     Indication: CENTRAL NERVOUS SYSTEM LYMPHOMA
     Dosage: 2ND CYCLE ADMINISTERED ON 15-SEPT-2003.
     Route: 042
     Dates: start: 20030821, end: 20030916
  4. VINCRISTINE SULFATE [Suspect]
     Indication: CENTRAL NERVOUS SYSTEM LYMPHOMA
     Dosage: 2ND CYCLE ADMINISTERED ON 02-OCT-2003.
     Route: 042
     Dates: start: 20030815, end: 20030821
  5. ADRIBLASTINE [Suspect]
     Indication: CENTRAL NERVOUS SYSTEM LYMPHOMA
     Dosage: 2ND CYCLE ADMINISTERED ON 02-OCT-2003.
     Route: 042
     Dates: start: 20030821, end: 20030821
  6. ARACYTINE [Suspect]
     Indication: CENTRAL NERVOUS SYSTEM LYMPHOMA
     Dosage: 2ND CYCLE ADMINSTERED ON 02-OCT-2003.
     Route: 042
     Dates: start: 20030821, end: 20030821
  7. PREDNISONE [Suspect]
     Dates: start: 20030815

REACTIONS (8)
  - BONE MARROW DEPRESSION [None]
  - ESCHERICHIA BACTERAEMIA [None]
  - FEBRILE BONE MARROW APLASIA [None]
  - INTESTINAL OBSTRUCTION [None]
  - LEUKOCYTOSIS [None]
  - PNEUMOCYSTIS CARINII PNEUMONIA [None]
  - SEPTIC SHOCK [None]
  - STREPTOCOCCAL SEPSIS [None]
